FAERS Safety Report 20710456 (Version 3)
Quarter: 2022Q2

REPORT INFORMATION
  Report Type: Spontaneous
  Country: US (occurrence: US)
  Receive Date: 20220414
  Receipt Date: 20220523
  Transmission Date: 20220721
  Serious: Yes (Other)
  Sender: FDA-Public Use
  Company Number: US-GLAXOSMITHKLINE-US2022AMR064613

PATIENT

DRUGS (1)
  1. ZEJULA [Suspect]
     Active Substance: NIRAPARIB
     Indication: Ovarian cancer
     Dosage: 200 MG, QD
     Route: 048

REACTIONS (8)
  - Hepatic function abnormal [Unknown]
  - Renal impairment [Unknown]
  - Blood pressure increased [Not Recovered/Not Resolved]
  - Blood creatine abnormal [Unknown]
  - Heart rate increased [Unknown]
  - Dizziness [Unknown]
  - Hyperaesthesia [Unknown]
  - Ageusia [Unknown]
